FAERS Safety Report 11065914 (Version 2)
Quarter: 2015Q2

REPORT INFORMATION
  Report Type: Spontaneous
  Country: US (occurrence: US)
  Receive Date: 20150425
  Receipt Date: 20150525
  Transmission Date: 20150821
  Serious: No
  Sender: FDA-Public Use
  Company Number: US-JNJFOC-20150304033

PATIENT
  Sex: Male
  Weight: 74.84 kg

DRUGS (7)
  1. FLOMAX [Concomitant]
     Active Substance: TAMSULOSIN HYDROCHLORIDE
     Indication: HYPERTENSION
     Dosage: ONCE OR TWICE DAILY
     Route: 065
     Dates: start: 2009
  2. ASPIRIN. [Concomitant]
     Active Substance: ASPIRIN
     Indication: ANTICOAGULANT THERAPY
     Dosage: ONCE OR TWICE DAILY
     Route: 065
     Dates: start: 1996
  3. ALEVE [Concomitant]
     Active Substance: NAPROXEN SODIUM
     Indication: BACK PAIN
     Route: 065
     Dates: start: 2010
  4. ALEVE [Concomitant]
     Active Substance: NAPROXEN SODIUM
     Indication: PAIN
     Route: 065
     Dates: start: 2010
  5. ALEVE [Concomitant]
     Active Substance: NAPROXEN SODIUM
     Indication: EXCESSIVE EXERCISE
     Route: 065
     Dates: start: 2010
  6. VITAMINS - CENTRUM SILVER [Concomitant]
     Dosage: ONCE OR TWICE DAILY
     Route: 065
     Dates: start: 1985
  7. LEVAQUIN [Suspect]
     Active Substance: LEVOFLOXACIN
     Indication: PROSTATITIS
     Route: 065
     Dates: start: 20150126, end: 201502

REACTIONS (1)
  - Tendonitis [Recovered/Resolved]

NARRATIVE: CASE EVENT DATE: 2015
